FAERS Safety Report 13196177 (Version 1)
Quarter: 2017Q1

REPORT INFORMATION
  Report Type: Spontaneous
  Country: DE (occurrence: DE)
  Receive Date: 20170208
  Receipt Date: 20170208
  Transmission Date: 20170428
  Serious: Yes (Other)
  Sender: FDA-Public Use
  Company Number: DE-009507513-1701DEU014281

PATIENT
  Age: 33 Year
  Sex: Female

DRUGS (1)
  1. CELESTAN [Suspect]
     Active Substance: BETAMETHASONE
     Dosage: UNK
     Dates: start: 20160905, end: 20160906

REACTIONS (3)
  - Gestational diabetes [Recovered/Resolved]
  - Maternal exposure during pregnancy [Recovered/Resolved]
  - Blood glucose increased [Not Recovered/Not Resolved]

NARRATIVE: CASE EVENT DATE: 201609
